FAERS Safety Report 16060554 (Version 2)
Quarter: 2019Q2

REPORT INFORMATION
  Report Type: Spontaneous
  Country: IT (occurrence: IT)
  Receive Date: 20190312
  Receipt Date: 20190402
  Transmission Date: 20190711
  Serious: Yes (Hospitalization, Other)
  Sender: FDA-Public Use
  Company Number: IT-GLAXOSMITHKLINE-IT2019GSK044170

PATIENT
  Sex: Male

DRUGS (1)
  1. NUCALA [Suspect]
     Active Substance: MEPOLIZUMAB
     Indication: PRODUCT USED FOR UNKNOWN INDICATION
     Dosage: UNK
     Dates: start: 20170922

REACTIONS (8)
  - Myocardial infarction [Recovering/Resolving]
  - Chest pain [Unknown]
  - Coronary artery disease [Unknown]
  - Vomiting [Unknown]
  - Enteritis [Unknown]
  - Pyrexia [Unknown]
  - Nausea [Unknown]
  - Ventricular tachycardia [Unknown]
